FAERS Safety Report 12848635 (Version 1)
Quarter: 2016Q4

REPORT INFORMATION
  Report Type: Spontaneous
  Country: US (occurrence: US)
  Receive Date: 20161014
  Receipt Date: 20161014
  Transmission Date: 20170207
  Serious: No
  Sender: FDA-Public Use
  Company Number: US-JNJFOC-20160903732

PATIENT
  Age: 90 Year
  Sex: Female
  Weight: 56.7 kg

DRUGS (2)
  1. TYLENOL 8 HR [Suspect]
     Active Substance: ACETAMINOPHEN
     Route: 048
  2. TYLENOL 8 HR [Suspect]
     Active Substance: ACETAMINOPHEN
     Indication: ARTHRALGIA
     Route: 048
     Dates: start: 20160902

REACTIONS (2)
  - Incorrect dose administered [Unknown]
  - Laceration [Recovering/Resolving]

NARRATIVE: CASE EVENT DATE: 20160902
